FAERS Safety Report 19612946 (Version 1)
Quarter: 2021Q3

REPORT INFORMATION
  Report Type: Spontaneous
  Country: SE (occurrence: SE)
  Receive Date: 20210727
  Receipt Date: 20210727
  Transmission Date: 20211014
  Serious: Yes (Other)
  Sender: FDA-Public Use
  Company Number: SE-TEVA-2021-SE-1935133

PATIENT
  Age: 24 Year
  Sex: Female
  Weight: 69 kg

DRUGS (1)
  1. ESCITALOPRAM TEVA 10 MG FILMDRAGERAD TABLETT [Suspect]
     Active Substance: ESCITALOPRAM OXALATE
     Indication: ANXIETY
     Dosage: 10 MILLIGRAM DAILY;
     Route: 048
     Dates: start: 20210304

REACTIONS (3)
  - Confusional state [Not Recovered/Not Resolved]
  - Hallucination [Not Recovered/Not Resolved]
  - Deja vu [Not Recovered/Not Resolved]

NARRATIVE: CASE EVENT DATE: 20210401
